FAERS Safety Report 5523015-9 (Version None)
Quarter: 2007Q4

REPORT INFORMATION
  Report Type: 
  Country: None (occurrence: None)
  Receive Date: 20071116
  Receipt Date: 20071116
  Transmission Date: 20080405
  Serious: No
  Sender: FDA-Public Use
  Company Number: None

PATIENT
  Sex: Female
  Weight: 113.3993 kg

DRUGS (2)
  1. CYMBALTA [Suspect]
     Indication: DEPRESSION
     Dosage: 30MGS  1 TIME DAILY
     Dates: start: 20070715, end: 20071112
  2. CYMBALTA [Suspect]
     Indication: PANIC ATTACK
     Dosage: 30MGS  1 TIME DAILY
     Dates: start: 20070715, end: 20071112

REACTIONS (4)
  - DIZZINESS [None]
  - FATIGUE [None]
  - INSOMNIA [None]
  - NAUSEA [None]
